FAERS Safety Report 25647616 (Version 1)
Quarter: 2025Q3

REPORT INFORMATION
  Report Type: Report from Study
  Country: CA (occurrence: CA)
  Receive Date: 20250806
  Receipt Date: 20250806
  Transmission Date: 20251021
  Serious: Yes (Other)
  Sender: TOLMAR
  Company Number: CA-20250728-c986c5, TLM-2025-05379(0)

PATIENT
  Age: 81 Year
  Sex: Male

DRUGS (3)
  1. ELIGARD [Suspect]
     Active Substance: LEUPROLIDE ACETATE
     Indication: Prostate cancer
     Dosage: 22.5 MG, EVERY 3 MONTHS
     Route: 058
     Dates: start: 20250505
  2. ELIGARD [Suspect]
     Active Substance: LEUPROLIDE ACETATE
     Dosage: 22.5 MG, EVERY 3 MONTHS
     Route: 058
     Dates: start: 20250728
  3. ELIGARD [Suspect]
     Active Substance: LEUPROLIDE ACETATE
     Indication: Prostate cancer

REACTIONS (4)
  - Syncope [Unknown]
  - Fall [Unknown]
  - Concussion [Unknown]
  - Hot flush [Unknown]
